FAERS Safety Report 20784605 (Version 3)
Quarter: 2022Q3

REPORT INFORMATION
  Report Type: Spontaneous
  Country: US (occurrence: US)
  Receive Date: 20220504
  Receipt Date: 20220801
  Transmission Date: 20221026
  Serious: Yes (Other)
  Sender: FDA-Public Use
  Company Number: US-PFIZER INC-202200640877

PATIENT
  Age: 67 Year
  Sex: Female

DRUGS (2)
  1. XELJANZ [Suspect]
     Active Substance: TOFACITINIB CITRATE
     Indication: Rheumatoid arthritis
     Dosage: 5 MG, 2X/DAY
     Route: 048
     Dates: start: 20200101
  2. TOZINAMERAN [Suspect]
     Active Substance: TOZINAMERAN
     Indication: COVID-19 immunisation
     Dosage: DOSE NUMBER UNKNOWN, SINGLE

REACTIONS (11)
  - Cardiac failure congestive [Unknown]
  - Product dose omission issue [Unknown]
  - Chest pain [Unknown]
  - Arthralgia [Unknown]
  - Movement disorder [Unknown]
  - Condition aggravated [Unknown]
  - Thyroid mass [Unknown]
  - Renal disorder [Unknown]
  - Muscle spasms [Unknown]
  - Joint swelling [Unknown]
  - Mass [Unknown]
